FAERS Safety Report 5691151-2 (Version None)
Quarter: 2008Q2

REPORT INFORMATION
  Report Type: 
  Country: None (occurrence: None)
  Receive Date: 20080402
  Receipt Date: 20080325
  Transmission Date: 20081010
  Serious: Yes (Disabling, Other)
  Sender: FDA-Public Use
  Company Number: GB-RB-000609-08

PATIENT
  Age: 27 Year
  Sex: Male
  Weight: 62 kg

DRUGS (1)
  1. SUBUTEX [Suspect]
     Route: 058
     Dates: start: 20060101

REACTIONS (3)
  - ANOREXIA [None]
  - SUBSTANCE ABUSE [None]
  - WEIGHT DECREASED [None]
